FAERS Safety Report 17841435 (Version 2)
Quarter: 2020Q2

REPORT INFORMATION
  Report Type: Spontaneous
  Country: CA (occurrence: CA)
  Receive Date: 20200529
  Receipt Date: 20200601
  Transmission Date: 20200714
  Serious: Yes (Other)
  Sender: FDA-Public Use
  Company Number: CA-TEVA-2020-CA-1241524

PATIENT
  Age: 70 Year
  Sex: Female
  Weight: 70 kg

DRUGS (21)
  1. GRAVOL [Concomitant]
     Active Substance: DIMENHYDRINATE
  2. TRIAMCINOLONE [Concomitant]
     Active Substance: TRIAMCINOLONE
  3. ZANTAC [Concomitant]
     Active Substance: RANITIDINE HYDROCHLORIDE
  4. ZOPICLONE [Concomitant]
     Active Substance: ZOPICLONE
  5. BENADRYL [Concomitant]
     Active Substance: DIPHENHYDRAMINE HYDROCHLORIDE
  6. CYCLOBENZAPRINE. [Concomitant]
     Active Substance: CYCLOBENZAPRINE
  7. FAMOTIDINE. [Concomitant]
     Active Substance: FAMOTIDINE
  8. MERSYNDOL WITH CODEINE [Concomitant]
     Active Substance: ACETAMINOPHEN\CODEINE PHOSPHATE\DOXYLAMINE SUCCINATE
  9. ACETAMINOPHEN AND CODEINE [Concomitant]
     Active Substance: ACETAMINOPHEN\CODEINE PHOSPHATE
  10. BETAMETHASONE DIPROPIONATE/SALICYLIC ACID [Concomitant]
  11. GLUCOSAMINE + CHONDROITIN [CHONDROITIN SULFATE;GLUCOSAMINE HYDROCHLORI [Concomitant]
  12. PROCHLORPERAZINE. [Concomitant]
     Active Substance: PROCHLORPERAZINE
  13. PACLITAXEL. [Suspect]
     Active Substance: PACLITAXEL
     Indication: MALIGNANT NEOPLASM OF UNKNOWN PRIMARY SITE
     Dosage: LIQUID INTRAVENOUS, 228 MG, CYCLICAL
     Route: 042
  14. BUSCOPAN [Concomitant]
     Active Substance: BUTYLSCOPOLAMINE BROMIDE
  15. DOCUSATE [Concomitant]
     Active Substance: DOCUSATE
  16. TRIAMCINOLONE [Concomitant]
     Active Substance: TRIAMCINOLONE
  17. MORPHINE [Concomitant]
     Active Substance: MORPHINE
  18. OLIVE LEAF EXTRACT II [Concomitant]
  19. ANUSOL HC [Concomitant]
     Active Substance: HYDROCORTISONE
  20. FLUCONAZOLE. [Concomitant]
     Active Substance: FLUCONAZOLE
  21. SYNTHROID [Concomitant]
     Active Substance: LEVOTHYROXINE SODIUM

REACTIONS (1)
  - Bronchospasm [Recovered/Resolved]
